FAERS Safety Report 14691056 (Version 1)
Quarter: 2018Q1

REPORT INFORMATION
  Report Type: Spontaneous
  Country: US (occurrence: US)
  Receive Date: 20180327
  Receipt Date: 20180327
  Transmission Date: 20180509
  Serious: Yes (Hospitalization)
  Sender: FDA-Public Use
  Company Number: None

PATIENT
  Age: 53 Year
  Sex: Male
  Weight: 103.4 kg

DRUGS (1)
  1. DOCETAXEL 10MG/ML 16ML VIAL HOSPIRA [Suspect]
     Active Substance: DOCETAXEL
     Indication: HEAD AND NECK CANCER
     Dosage: DATES OF USE - 2/5/18, 2/26/18, 3/19/18
     Route: 042

REACTIONS (2)
  - Infusion related reaction [None]
  - Erythema [None]

NARRATIVE: CASE EVENT DATE: 20180319
